FAERS Safety Report 14389357 (Version 2)
Quarter: 2018Q2

REPORT INFORMATION
  Report Type: Spontaneous
  Country: US (occurrence: US)
  Receive Date: 20180115
  Receipt Date: 20180604
  Transmission Date: 20180711
  Serious: Yes (Other)
  Sender: FDA-Public Use
  Company Number: US-SA-2017SA242380

PATIENT
  Age: 56 Year
  Sex: Female
  Weight: 116.5 kg

DRUGS (16)
  1. FUROSEMIDE. [Concomitant]
     Active Substance: FUROSEMIDE
  2. LOPERAMIDE [Concomitant]
     Active Substance: LOPERAMIDE
  3. HERCEPTIN [Concomitant]
     Active Substance: TRASTUZUMAB
  4. ENALAPRIL [Concomitant]
     Active Substance: ENALAPRIL
  5. LORATADINE. [Concomitant]
     Active Substance: LORATADINE
  6. LOVASTATIN. [Concomitant]
     Active Substance: LOVASTATIN
  7. TAMOXIFEN [Concomitant]
     Active Substance: TAMOXIFEN
  8. TAXOTERE [Suspect]
     Active Substance: DOCETAXEL
     Dosage: 100 MG,Q3W
     Route: 051
     Dates: start: 20110818, end: 20110818
  9. PARAPLATIN [Concomitant]
     Active Substance: CARBOPLATIN
  10. ATROPINE SULFATE. [Concomitant]
     Active Substance: ATROPINE SULFATE
  11. HYDROCODONE BITARTRATE AND ACETAMINOPHEN [Concomitant]
     Active Substance: ACETAMINOPHEN\HYDROCODONE BITARTRATE
  12. PROAIR HFA [Concomitant]
     Active Substance: ALBUTEROL SULFATE
  13. TAXOTERE [Suspect]
     Active Substance: DOCETAXEL
     Indication: BREAST CANCER
     Dosage: 140 MG,Q3W
     Route: 051
     Dates: start: 20110504, end: 20110504
  14. SPIRONOLACTONE. [Concomitant]
     Active Substance: SPIRONOLACTONE
  15. DEXAMETHASONE. [Concomitant]
     Active Substance: DEXAMETHASONE
  16. CARVEDILOL. [Concomitant]
     Active Substance: CARVEDILOL

REACTIONS (6)
  - Psychological trauma [Unknown]
  - Alopecia [Recovering/Resolving]
  - Impaired quality of life [Unknown]
  - Anxiety [Unknown]
  - Pain [Unknown]
  - Emotional distress [Unknown]

NARRATIVE: CASE EVENT DATE: 20120218
